FAERS Safety Report 6032739-9 (Version None)
Quarter: 2009Q1

REPORT INFORMATION
  Report Type: 
  Country: None (occurrence: None)
  Receive Date: 20090105
  Receipt Date: 20081009
  Transmission Date: 20090719
  Serious: Yes (Hospitalization)
  Sender: FDA-Public Use
  Company Number: US-001956

PATIENT
  Age: 72 Year
  Sex: Male
  Weight: 105 kg

DRUGS (2)
  1. MULTIHANCE [Suspect]
     Indication: INTERVERTEBRAL DISC DEGENERATION
     Dosage: 15ML QD INTRAVENOUS
     Route: 042
     Dates: start: 20081008, end: 20081008
  2. MULTIHANCE [Suspect]
     Indication: NUCLEAR MAGNETIC RESONANCE IMAGING
     Dosage: 15ML QD INTRAVENOUS
     Route: 042
     Dates: start: 20081008, end: 20081008

REACTIONS (1)
  - HYPERSENSITIVITY [None]
